FAERS Safety Report 11297431 (Version 1)
Quarter: 2015Q3

REPORT INFORMATION
  Report Type: Spontaneous
  Country: US (occurrence: US)
  Receive Date: 20150722
  Receipt Date: 20150722
  Transmission Date: 20151125
  Serious: Yes (Hospitalization)
  Sender: FDA-Public Use
  Company Number: US-ELI_LILLY_AND_COMPANY-US201104007870

PATIENT
  Age: 62 Year
  Sex: Male

DRUGS (4)
  1. PRASUGREL HYDROCHLORIDE [Suspect]
     Active Substance: PRASUGREL HYDROCHLORIDE
     Indication: STENT PLACEMENT
     Dosage: 60 MG, LOADING DOSE
     Dates: start: 20110223
  2. PRASUGREL HYDROCHLORIDE [Suspect]
     Active Substance: PRASUGREL HYDROCHLORIDE
     Dosage: 10 MG, QD
  3. ASPIRIN. [Concomitant]
     Active Substance: ASPIRIN
  4. COREG [Concomitant]
     Active Substance: CARVEDILOL

REACTIONS (1)
  - Gastrointestinal haemorrhage [Unknown]
